FAERS Safety Report 4513386-4 (Version None)
Quarter: 2004Q4

REPORT INFORMATION
  Report Type: 
  Country: None (occurrence: None)
  Receive Date: 20041130
  Receipt Date: 20040902
  Transmission Date: 20050328
  Serious: Yes (Other)
  Sender: FDA-Public Use
  Company Number: US-BRISTOL-MYERS SQUIBB COMPANY-12692497

PATIENT
  Sex: Male

DRUGS (2)
  1. ERBITUX [Suspect]
     Indication: SQUAMOUS CELL CARCINOMA
     Dosage: 21.6 CC.
     Route: 042
     Dates: start: 20040728, end: 20040728
  2. BENADRYL [Concomitant]
     Indication: PREMEDICATION
     Dates: start: 20040728, end: 20040728

REACTIONS (4)
  - BLOOD PRESSURE ABNORMAL [None]
  - CHILLS [None]
  - DYSPNOEA [None]
  - FLUSHING [None]
